FAERS Safety Report 4955558-0 (Version None)
Quarter: 2006Q1

REPORT INFORMATION
  Report Type: 
  Country: None (occurrence: None)
  Receive Date: 20060328
  Receipt Date: 20051123
  Transmission Date: 20060701
  Serious: Yes (Death)
  Sender: FDA-Public Use
  Company Number: US-MERCK-0511USA04022

PATIENT
  Age: 74 Year
  Sex: Female
  Weight: 64 kg

DRUGS (8)
  1. VIOXX [Suspect]
     Indication: OSTEOARTHRITIS
     Route: 048
     Dates: start: 20021201, end: 20031105
  2. VIOXX [Suspect]
     Indication: JOINT INJURY
     Route: 048
     Dates: start: 20021201, end: 20031105
  3. ULTRAM [Concomitant]
     Route: 065
     Dates: start: 20020101
  4. DARVOCET [Concomitant]
     Route: 065
     Dates: start: 20030101
  5. PRINIVIL [Concomitant]
     Indication: HYPERTENSION
     Route: 065
     Dates: start: 19970101, end: 20030101
  6. ASPIRIN [Concomitant]
     Indication: MYOCARDIAL INFARCTION
     Route: 065
     Dates: start: 19970101, end: 20030101
  7. FOLIC ACID [Concomitant]
     Indication: BLOOD HOMOCYSTEINE INCREASED
     Route: 065
  8. PREMARIN [Concomitant]
     Route: 065

REACTIONS (4)
  - CEREBROVASCULAR ACCIDENT [None]
  - DEATH [None]
  - INJURY [None]
  - TRANSIENT ISCHAEMIC ATTACK [None]
